FAERS Safety Report 8143676-8 (Version None)
Quarter: 2012Q1

REPORT INFORMATION
  Report Type: 
  Country: None (occurrence: None)
  Receive Date: 20120103
  Receipt Date: 20111007
  Transmission Date: 20120608
  Serious: No
  Sender: FDA-Public Use
  Company Number: AE-2011-002126

PATIENT
  Age: 52 Year
  Sex: Male

DRUGS (5)
  1. MULTIVITAMIN (MULTIVITAMIN ^LAPPE^) [Concomitant]
  2. VITAMIN B COMPLEX (B-KOMPLEX ^LECIVA^) [Concomitant]
  3. RIBAVIRIN [Concomitant]
  4. PEGASYS [Concomitant]
  5. INCIVEK [Suspect]
     Dosage: 2250 MG (750 MG, 3 IN 1 D), ORAL
     Route: 048
     Dates: start: 20110829

REACTIONS (6)
  - PLATELET COUNT DECREASED [None]
  - DIZZINESS [None]
  - CONSTIPATION [None]
  - HAEMORRHOIDS [None]
  - ANORECTAL DISCOMFORT [None]
  - PRURITUS GENERALISED [None]
